FAERS Safety Report 9106850 (Version 2)
Quarter: 2013Q2

REPORT INFORMATION
  Report Type: Report from Study
  Country: DE (occurrence: DE)
  Receive Date: 20130221
  Receipt Date: 20130418
  Transmission Date: 20140414
  Serious: Yes (Hospitalization, Other)
  Sender: FDA-Public Use
  Company Number: DE-ROCHE-1191834

PATIENT
  Sex: Female
  Weight: 62 kg

DRUGS (8)
  1. BEVACIZUMAB [Suspect]
     Indication: METASTATIC RENAL CELL CARCINOMA
     Route: 042
  2. NOVALGIN [Concomitant]
     Route: 065
  3. L-THYROXIN [Concomitant]
     Route: 065
  4. PANTOZOL [Concomitant]
     Route: 065
  5. PALLADON [Concomitant]
     Route: 065
  6. AMINEURIN [Concomitant]
     Route: 065
  7. TOREM [Concomitant]
     Route: 065
  8. ROFERON-A [Concomitant]
     Route: 058

REACTIONS (12)
  - Cardiomyopathy [Recovering/Resolving]
  - Cardiac failure [Recovering/Resolving]
  - Bundle branch block left [Recovering/Resolving]
  - Mitral valve incompetence [Recovering/Resolving]
  - Pulmonary hypertension [Recovering/Resolving]
  - Tricuspid valve incompetence [Recovering/Resolving]
  - Aortic valve sclerosis [Recovering/Resolving]
  - Pleural effusion [Recovering/Resolving]
  - Pancytopenia [Unknown]
  - Weight decreased [Unknown]
  - Nausea [Not Recovered/Not Resolved]
  - Vomiting [Not Recovered/Not Resolved]
